FAERS Safety Report 6860089-7 (Version None)
Quarter: 2010Q3

REPORT INFORMATION
  Report Type: 
  Country: None (occurrence: None)
  Receive Date: 20100720
  Receipt Date: 20100709
  Transmission Date: 20110219
  Serious: Yes (Other)
  Sender: FDA-Public Use
  Company Number: US-AMGEN-QUU423574

PATIENT
  Sex: Male

DRUGS (2)
  1. ENBREL [Suspect]
     Indication: PSORIATIC ARTHROPATHY
     Route: 058
     Dates: start: 20030101, end: 20100303
  2. ENBREL [Suspect]
     Indication: PSORIASIS

REACTIONS (13)
  - ARTHRALGIA [None]
  - ASTHMA [None]
  - BLOOD TESTOSTERONE DECREASED [None]
  - CARPAL TUNNEL SYNDROME [None]
  - FATIGUE [None]
  - HYPOTHALAMO-PITUITARY DISORDER [None]
  - HYPOTHYROIDISM [None]
  - LUPUS-LIKE SYNDROME [None]
  - MIGRAINE [None]
  - NEUROPATHY PERIPHERAL [None]
  - PSORIASIS [None]
  - RASH [None]
  - VITAMIN D DECREASED [None]
